FAERS Safety Report 20582507 (Version 1)
Quarter: 2022Q1

REPORT INFORMATION
  Report Type: Spontaneous
  Country: US (occurrence: None)
  Receive Date: 20220311
  Receipt Date: 20220311
  Transmission Date: 20220424
  Serious: Yes (Hospitalization)
  Sender: FDA-Public Use
  Company Number: None

PATIENT
  Age: 68 Year
  Sex: Male
  Weight: 89 kg

DRUGS (1)
  1. SEMAGLUTIDE [Suspect]
     Active Substance: SEMAGLUTIDE
     Indication: Diabetes mellitus
     Dosage: 1 MG QWEEK SQ
     Route: 058
     Dates: start: 20211208

REACTIONS (6)
  - Pancreatitis [None]
  - Therapy change [None]
  - Abdominal pain [None]
  - Nausea [None]
  - Vomiting [None]
  - Amylase increased [None]

NARRATIVE: CASE EVENT DATE: 20220128
